FAERS Safety Report 11134622 (Version 2)
Quarter: 2015Q2

REPORT INFORMATION
  Report Type: Report from Study
  Country: US (occurrence: US)
  Receive Date: 20150525
  Receipt Date: 20150622
  Transmission Date: 20150821
  Serious: Yes (Hospitalization)
  Sender: FDA-Public Use
  Company Number: US-ROCHE-1580264

PATIENT
  Age: 42 Year
  Sex: Male

DRUGS (17)
  1. ONDANSETRON [Concomitant]
     Active Substance: ONDANSETRON
     Route: 065
     Dates: start: 20120329, end: 20120412
  2. OXYCODONE [Concomitant]
     Active Substance: OXYCODONE
     Route: 065
     Dates: start: 20120301, end: 20120412
  3. ASPIRIN. [Concomitant]
     Active Substance: ASPIRIN
     Route: 065
     Dates: start: 20120414, end: 20120522
  4. ATORVASTATIN [Concomitant]
     Active Substance: ATORVASTATIN
     Route: 065
     Dates: start: 20120301, end: 20120412
  5. LEUCOVORIN [Suspect]
     Active Substance: LEUCOVORIN
     Indication: METASTATIC GASTRIC CANCER
     Dosage: LAST DOSE RECEIVED ON 10/MAY/2012
     Route: 065
     Dates: start: 20120301
  6. OMEGA-3 TRIGLYCERIDES [Concomitant]
     Route: 065
     Dates: start: 20120517, end: 20121022
  7. TRASTUZUMAB [Suspect]
     Active Substance: TRASTUZUMAB
     Indication: METASTATIC GASTRIC CANCER
     Dosage: LAST DOSE RECEIVED ON 10/MAY/2012
     Route: 065
     Dates: start: 20120301
  8. CALCIUM ACETATE. [Concomitant]
     Active Substance: CALCIUM ACETATE
     Route: 065
     Dates: start: 20120517
  9. CYANOCOBALAMIN. [Concomitant]
     Active Substance: CYANOCOBALAMIN
     Route: 065
     Dates: start: 20120517
  10. DEXAMETHASONE. [Concomitant]
     Active Substance: DEXAMETHASONE
     Route: 065
     Dates: start: 20120329, end: 20120517
  11. DOCETAXEL. [Suspect]
     Active Substance: DOCETAXEL
     Indication: METASTATIC GASTRIC CANCER
     Dosage: LAST DOSE RECEIVED ON 10/MAY/2012
     Route: 065
     Dates: start: 20120301
  12. CISPLATIN. [Suspect]
     Active Substance: CISPLATIN
     Indication: METASTATIC GASTRIC CANCER
     Dosage: LAST DOSE RECEIVED ON 10/MAY/2012
     Route: 065
     Dates: start: 20120301
  13. APREPITANT. [Concomitant]
     Active Substance: APREPITANT
     Route: 065
     Dates: start: 20120329, end: 20120517
  14. 5-FU [Suspect]
     Active Substance: FLUOROURACIL
     Indication: METASTATIC GASTRIC CANCER
     Dosage: LAST DOSE RECEIVED ON 10/MAY/2012
     Route: 065
     Dates: start: 20120301
  15. NADOLOL. [Concomitant]
     Active Substance: NADOLOL
     Route: 065
     Dates: start: 20120412
  16. ENOXAPARIN SODIUM. [Concomitant]
     Active Substance: ENOXAPARIN SODIUM
     Route: 065
     Dates: start: 20120517
  17. ACETAMINOPHEN. [Concomitant]
     Active Substance: ACETAMINOPHEN
     Route: 065
     Dates: start: 20120301, end: 20120412

REACTIONS (7)
  - Thrombosis [Recovered/Resolved]
  - Left ventricular dysfunction [Recovered/Resolved]
  - Anaemia [Unknown]
  - Dehydration [Unknown]
  - Embolism [Recovered/Resolved]
  - Gastrointestinal haemorrhage [Unknown]
  - Neutropenia [Unknown]

NARRATIVE: CASE EVENT DATE: 20120516
